FAERS Safety Report 21117919 (Version 1)
Quarter: 2022Q3

REPORT INFORMATION
  Report Type: Spontaneous
  Country: US (occurrence: None)
  Receive Date: 20220722
  Receipt Date: 20220722
  Transmission Date: 20221026
  Serious: No
  Sender: FDA-Public Use
  Company Number: 2022A255655

PATIENT
  Sex: Female

DRUGS (3)
  1. DALIRESP [Suspect]
     Active Substance: ROFLUMILAST
     Route: 048
  2. OPSUMIT [Suspect]
     Active Substance: MACITENTAN
     Route: 048
  3. IRON [Concomitant]
     Active Substance: IRON

REACTIONS (4)
  - Burning sensation [Unknown]
  - Injury [Unknown]
  - Asthenia [Unknown]
  - Fatigue [Unknown]
